APPROVED DRUG PRODUCT: ROCALTROL
Active Ingredient: CALCITRIOL
Strength: 0.5MCG
Dosage Form/Route: CAPSULE;ORAL
Application: N018044 | Product #002 | TE Code: AB
Applicant: ESJAY PHARMA LLC
Approved: Approved Prior to Jan 1, 1982 | RLD: Yes | RS: No | Type: RX